FAERS Safety Report 18207397 (Version 1)
Quarter: 2020Q3

REPORT INFORMATION
  Report Type: Spontaneous
  Country: US (occurrence: US)
  Receive Date: 20200827
  Receipt Date: 20200827
  Transmission Date: 20201103
  Serious: No
  Sender: FDA-Public Use
  Company Number: None

PATIENT
  Age: 74 Year
  Sex: Female
  Weight: 67.13 kg

DRUGS (25)
  1. OMEGA OILS [Concomitant]
  2. ALPHA LIPOIC ACID [Concomitant]
     Active Substance: .ALPHA.-LIPOIC ACID
  3. VITAMIN D [Concomitant]
     Active Substance: VITAMIN D NOS
  4. GUAIFENESIN. [Concomitant]
     Active Substance: GUAIFENESIN
  5. ALEVE [Concomitant]
     Active Substance: NAPROXEN SODIUM
  6. TOPICAL LIDOCAINE 4% [Concomitant]
  7. MELATONIN [Concomitant]
     Active Substance: MELATONIN
  8. FUROSEMIDE. [Concomitant]
     Active Substance: FUROSEMIDE
  9. DIGESTIVE ENZYMES [Concomitant]
     Active Substance: UNSPECIFIED INGREDIENT
  10. LIDOCAINE 5% PATCH [Concomitant]
     Active Substance: LIDOCAINE
  11. SOLGAR VM?75 [Concomitant]
  12. GLUTEN EZE [Concomitant]
  13. SIMETHICONE (DIMETHICONE) [Concomitant]
     Active Substance: DIMETHICONE
  14. ZYRTEC [Concomitant]
     Active Substance: CETIRIZINE HYDROCHLORIDE
  15. CLONIDINE. [Concomitant]
     Active Substance: CLONIDINE
  16. RAMELTEON TABLETS 8MG [Suspect]
     Active Substance: RAMELTEON
     Indication: INSOMNIA
     Dosage: ?          QUANTITY:1 MG MILLIGRAM(S);?
     Route: 048
     Dates: start: 20200817, end: 20200818
  17. VITAMIN K [Concomitant]
     Active Substance: PHYTONADIONE
  18. HYDROCODONE BITARTRATE AND ACETAMINOPHEN [Concomitant]
     Active Substance: ACETAMINOPHEN\HYDROCODONE BITARTRATE
  19. IPRATROPIUM [Concomitant]
     Active Substance: IPRATROPIUM
  20. C?500 [Concomitant]
  21. STOOL SOFTENER (DOCUSATE) [Concomitant]
     Active Substance: DOCUSATE
  22. METHYLCELLULOSE [Concomitant]
     Active Substance: METHYLCELLULOSES
  23. LIOTHYRONINE [Concomitant]
     Active Substance: LIOTHYRONINE
  24. TRI?EST TD [Concomitant]
  25. GENTEAL MILD [Concomitant]
     Active Substance: HYPROMELLOSE 2910 (4000 MPA.S)

REACTIONS (7)
  - Myalgia [None]
  - Insomnia [None]
  - Nasal congestion [None]
  - Rhinorrhoea [None]
  - Hyperhidrosis [None]
  - Feeling hot [None]
  - Complex regional pain syndrome [None]

NARRATIVE: CASE EVENT DATE: 20200817
